FAERS Safety Report 24195584 (Version 2)
Quarter: 2025Q2

REPORT INFORMATION
  Report Type: Spontaneous
  Country: IT (occurrence: IT)
  Receive Date: 20240809
  Receipt Date: 20250625
  Transmission Date: 20250717
  Serious: Yes (Death, Hospitalization, Other)
  Sender: NOVARTIS
  Company Number: IT-002147023-NVSC2021IT178368

PATIENT
  Age: 46 Year
  Sex: Male

DRUGS (13)
  1. CYCLOSPORINE [Suspect]
     Active Substance: CYCLOSPORINE
     Indication: Aplastic anaemia
     Route: 065
  2. CYCLOSPORINE [Suspect]
     Active Substance: CYCLOSPORINE
     Indication: Immunosuppressant drug therapy
  3. EQUINE THYMOCYTE IMMUNE GLOBULIN [Suspect]
     Active Substance: EQUINE THYMOCYTE IMMUNE GLOBULIN
     Indication: Aplastic anaemia
     Route: 065
  4. EQUINE THYMOCYTE IMMUNE GLOBULIN [Suspect]
     Active Substance: EQUINE THYMOCYTE IMMUNE GLOBULIN
     Indication: Immunosuppressant drug therapy
  5. DEFIBROTIDE [Suspect]
     Active Substance: DEFIBROTIDE (BOVINE)
     Indication: Venoocclusive liver disease
     Route: 065
  6. FLUDARABINE PHOSPHATE [Suspect]
     Active Substance: FLUDARABINE PHOSPHATE
     Indication: Aplastic anaemia
     Route: 065
  7. FLUDARABINE PHOSPHATE [Suspect]
     Active Substance: FLUDARABINE PHOSPHATE
     Indication: Bone marrow conditioning regimen
  8. FLUDARABINE PHOSPHATE [Suspect]
     Active Substance: FLUDARABINE PHOSPHATE
     Indication: Allogenic stem cell transplantation
  9. BUSULFAN [Suspect]
     Active Substance: BUSULFAN
     Indication: Aplastic anaemia
     Route: 065
  10. BUSULFAN [Suspect]
     Active Substance: BUSULFAN
     Indication: Bone marrow conditioning regimen
  11. THIOTEPA [Suspect]
     Active Substance: THIOTEPA
     Indication: Bone marrow conditioning regimen
     Route: 065
  12. THIOTEPA [Suspect]
     Active Substance: THIOTEPA
     Indication: Aplastic anaemia
  13. THIOTEPA [Suspect]
     Active Substance: THIOTEPA
     Indication: Allogenic stem cell transplantation

REACTIONS (21)
  - Pyrexia [Fatal]
  - Melaena [Fatal]
  - Duodenal ulcer [Fatal]
  - Epstein-Barr virus infection [Fatal]
  - Duodenitis [Fatal]
  - Apoptosis [Fatal]
  - Mucocutaneous ulceration [Fatal]
  - Venoocclusive liver disease [Recovered/Resolved]
  - Hyperplasia [Fatal]
  - Hypotension [Fatal]
  - Intestinal haemorrhage [Fatal]
  - Mucosal erosion [Fatal]
  - Rectal haemorrhage [Fatal]
  - Enterocolitis viral [Fatal]
  - Sepsis [Fatal]
  - Tachycardia [Fatal]
  - Jejunal ulcer [Fatal]
  - Acute graft versus host disease in intestine [Unknown]
  - Cardiac arrest [Fatal]
  - Therapy non-responder [Unknown]
  - Product use in unapproved indication [Unknown]
